FAERS Safety Report 7586975-0 (Version None)
Quarter: 2011Q3

REPORT INFORMATION
  Report Type: 
  Country: None (occurrence: None)
  Receive Date: 20110701
  Receipt Date: 20110622
  Transmission Date: 20111222
  Serious: No
  Sender: FDA-Public Use
  Company Number: PHHY2011NL55055

PATIENT
  Sex: Female

DRUGS (4)
  1. TASIGNA [Suspect]
     Dosage: 200 MG, TID
     Route: 048
  2. ASCAL [Concomitant]
  3. DILTIAZEM [Concomitant]
  4. PROMOCARD [Concomitant]

REACTIONS (5)
  - LIMB DISCOMFORT [None]
  - RESPIRATORY TRACT IRRITATION [None]
  - FEELING COLD [None]
  - EYE DISORDER [None]
  - MUSCULOSKELETAL CHEST PAIN [None]
